FAERS Safety Report 4533404-7 (Version None)
Quarter: 2004Q4

REPORT INFORMATION
  Report Type: 
  Country: None (occurrence: None)
  Receive Date: 20041210
  Receipt Date: 20041012
  Transmission Date: 20050328
  Serious: Yes (Hospitalization)
  Sender: FDA-Public Use
  Company Number: 2004-00629

PATIENT
  Age: 55 Year
  Sex: Male
  Weight: 81.2 kg

DRUGS (2)
  1. VELCADE [Suspect]
     Indication: MULTIPLE MYELOMA
     Dosage: 1.30 MG, INTRAVENOUS
     Route: 042
     Dates: start: 20040216, end: 20040315
  2. THALIDOMIDE (THALIDOMIDE) [Suspect]
     Indication: MULTIPLE MYELOMA
     Dosage: 50.00 MG, QD, ORAL
     Route: 048
     Dates: start: 20040216, end: 20040315

REACTIONS (2)
  - ORTHOSTATIC HYPOTENSION [None]
  - RENAL FAILURE ACUTE [None]
